FAERS Safety Report 21494036 (Version 2)
Quarter: 2022Q4

REPORT INFORMATION
  Report Type: Spontaneous
  Country: IT (occurrence: IT)
  Receive Date: 20221021
  Receipt Date: 20221025
  Transmission Date: 20230113
  Serious: Yes (Life-Threatening)
  Sender: FDA-Public Use
  Company Number: None

PATIENT
  Age: 40 Year
  Sex: Male
  Weight: 82 kg

DRUGS (3)
  1. IRINOTECAN HYDROCHLORIDE [Suspect]
     Active Substance: IRINOTECAN HYDROCHLORIDE
     Indication: Colon neoplasm
     Dosage: 330 MG
     Route: 042
     Dates: start: 20221012, end: 20221012
  2. FLUOROURACIL [Suspect]
     Active Substance: FLUOROURACIL
     Indication: Colon neoplasm
     Dosage: 6400 MG IN 48 HOURS
     Route: 042
     Dates: start: 20221012, end: 20221013
  3. OXALIPLATIN [Suspect]
     Active Substance: OXALIPLATIN
     Indication: Colon neoplasm
     Dosage: 170 MG
     Route: 042
     Dates: start: 20221012, end: 20221012

REACTIONS (1)
  - Ventricular dysfunction [Unknown]

NARRATIVE: CASE EVENT DATE: 20221013
